FAERS Safety Report 9906557 (Version 2)
Quarter: 2014Q1

REPORT INFORMATION
  Report Type: Report from Study
  Country: PH (occurrence: PH)
  Receive Date: 20140218
  Receipt Date: 20140218
  Transmission Date: 20141002
  Serious: Yes (Hospitalization)
  Sender: FDA-Public Use
  Company Number: PH-PFIZER INC-2010111945

PATIENT
  Age: 57 Year
  Sex: Female
  Weight: 68.5 kg

DRUGS (3)
  1. TOFACITINIB CITRATE [Suspect]
     Indication: RHEUMATOID ARTHRITIS
     Dosage: 10 MG, 2X/DAY
     Route: 048
     Dates: start: 20100622, end: 20100830
  2. CELEBREX [Concomitant]
     Indication: RHEUMATOID ARTHRITIS
     Dosage: 200 MG, 2X/DAY
     Route: 048
     Dates: start: 1999
  3. PREDNISONE [Concomitant]
     Indication: ANTIINFLAMMATORY THERAPY
     Dosage: 5 MG, 1X/DAY
     Route: 048
     Dates: start: 1999

REACTIONS (1)
  - Abscess jaw [Recovered/Resolved]
